FAERS Safety Report 16508285 (Version 1)
Quarter: 2019Q3

REPORT INFORMATION
  Report Type: Report from Study
  Country: PT (occurrence: PT)
  Receive Date: 20190701
  Receipt Date: 20190701
  Transmission Date: 20191004
  Serious: Yes (Hospitalization, Other)
  Sender: FDA-Public Use
  Company Number: PT-MYLANLABS-2019M1059336

PATIENT
  Age: 63 Year
  Sex: Male

DRUGS (8)
  1. EVEROLIMUS. [Suspect]
     Active Substance: EVEROLIMUS
     Dosage: 1 UNK
     Route: 065
     Dates: start: 20180801, end: 20180828
  2. LENVATINIB [Suspect]
     Active Substance: LENVATINIB
     Dosage: 14MG  UNK
     Route: 048
     Dates: start: 20180120, end: 20180707
  3. CANDESARTAN CILEXETIL AND HYDROCHLOROTHIAZIDE [Concomitant]
     Active Substance: CANDESARTAN CILEXETIL\HYDROCHLOROTHIAZIDE
     Indication: PRODUCT USED FOR UNKNOWN INDICATION
     Dosage: UNK
     Route: 065
  4. EVEROLIMUS. [Suspect]
     Active Substance: EVEROLIMUS
     Indication: RENAL CELL CARCINOMA
     Dosage: 5 MG, QD
     Route: 048
     Dates: start: 20180620, end: 20180707
  5. EVEROLIMUS. [Suspect]
     Active Substance: EVEROLIMUS
     Dosage: 5 MILLIGRAM, QD
     Route: 048
     Dates: start: 20181026, end: 20181120
  6. LENVATINIB [Suspect]
     Active Substance: LENVATINIB
     Dosage: UNK
     Route: 065
     Dates: start: 20180801, end: 20180828
  7. AMLODIPINE [Concomitant]
     Active Substance: AMLODIPINE BESYLATE
     Indication: PRODUCT USED FOR UNKNOWN INDICATION
     Dosage: UNK
     Route: 065
  8. LENVATINIB [Suspect]
     Active Substance: LENVATINIB
     Indication: RENAL CELL CARCINOMA
     Dosage: 8 MILLIGRAM, QD
     Route: 048
     Dates: start: 20181026, end: 20181120

REACTIONS (15)
  - Blood creatinine increased [Unknown]
  - Vomiting [Recovered/Resolved]
  - Gastroenteritis [Recovered/Resolved]
  - Blood osmolarity decreased [Unknown]
  - Appendicitis [Recovered/Resolved]
  - Hyponatraemia [Unknown]
  - Hypotension [Recovered/Resolved]
  - Haematocrit decreased [Unknown]
  - Nausea [Unknown]
  - Abdominal pain [Recovering/Resolving]
  - Dehydration [Unknown]
  - Appendiceal abscess [Unknown]
  - Blood urea increased [Unknown]
  - Hypochloraemia [Unknown]
  - Diarrhoea [Recovered/Resolved]

NARRATIVE: CASE EVENT DATE: 201807
